FAERS Safety Report 21391164 (Version 2)
Quarter: 2022Q4

REPORT INFORMATION
  Report Type: Spontaneous
  Country: JP (occurrence: None)
  Receive Date: 20220929
  Receipt Date: 20221017
  Transmission Date: 20230113
  Serious: Yes (Other)
  Sender: FDA-Public Use
  Company Number: 2022A245689

PATIENT
  Age: 85 Year
  Sex: Male

DRUGS (17)
  1. ONDEXXYA [Suspect]
     Active Substance: ANDEXANET ALFA
     Indication: Cerebral haemorrhage
     Dosage: INJECTION SITE: A VEIN IN THE MEDIAL SIDE OF THE LEFT LOWER LIMB 800 MG + 960 MG
     Route: 041
     Dates: start: 20220701
  2. UNSPECIFIED INGREDIENT [Concomitant]
     Active Substance: UNSPECIFIED INGREDIENT
     Dosage: DOSE UNKNOWN
     Route: 065
  3. EDOXABAN TOSYLATE [Concomitant]
     Active Substance: EDOXABAN TOSYLATE
     Dosage: DOSE UNKNOWN
     Route: 065
  4. ENALAPRIL [Concomitant]
     Active Substance: ENALAPRIL
  5. CARDENALIN [Concomitant]
     Active Substance: DOXAZOSIN MESYLATE
  6. AMLODIPINE BESYLATE [Concomitant]
     Active Substance: AMLODIPINE BESYLATE
  7. VONOPRAZAN FUMARATE [Concomitant]
     Active Substance: VONOPRAZAN FUMARATE
  8. ISOSORBIDE DINITRATE [Concomitant]
     Active Substance: ISOSORBIDE DINITRATE
  9. BISOPROLOL [Concomitant]
     Active Substance: BISOPROLOL
  10. MIYA-BM [Concomitant]
     Active Substance: CLOSTRIDIUM BUTYRICUM SPORES STRAIN M-55
  11. MOSAPRIDE CITRATE [Concomitant]
     Active Substance: MOSAPRIDE CITRATE
  12. LINAGLIPTIN [Concomitant]
     Active Substance: LINAGLIPTIN
  13. METGLUCO [Concomitant]
     Active Substance: METFORMIN HYDROCHLORIDE
  14. ADONA [Concomitant]
  15. DAYVIGO [Concomitant]
     Active Substance: LEMBOREXANT
  16. SYMMETREL [Concomitant]
     Active Substance: AMANTADINE HYDROCHLORIDE
  17. LEVOCARNITINE HYDROCHLORIDE [Concomitant]
     Active Substance: LEVOCARNITINE HYDROCHLORIDE

REACTIONS (2)
  - Cerebral infarction [Recovered/Resolved with Sequelae]
  - Phlebitis [Recovered/Resolved]

NARRATIVE: CASE EVENT DATE: 20220701
